FAERS Safety Report 4752646-9 (Version None)
Quarter: 2005Q3

REPORT INFORMATION
  Report Type: 
  Country: None (occurrence: None)
  Receive Date: 20050823
  Receipt Date: 20050804
  Transmission Date: 20060218
  Serious: Yes (Death, Other)
  Sender: FDA-Public Use
  Company Number: JP_050807269

PATIENT
  Age: 28 Year
  Sex: Male
  Weight: 103 kg

DRUGS (7)
  1. ZYPREXA [Suspect]
     Indication: SCHIZOPHRENIA
     Dosage: 10 MG/1 DAY
     Dates: start: 20030408
  2. RISPERDAL [Concomitant]
  3. DEPAKENE-R  /JPN/ (VALPROATE SODIUM) [Concomitant]
  4. LENDORM [Concomitant]
  5. DORAL [Concomitant]
  6. NITRAZEPAM [Concomitant]
  7. NIZATIDINE [Concomitant]

REACTIONS (5)
  - ASTHENIA [None]
  - CARDIO-RESPIRATORY ARREST [None]
  - DIABETIC COMA [None]
  - KETOSIS [None]
  - THIRST [None]
